FAERS Safety Report 4325388-1 (Version None)
Quarter: 2004Q1

REPORT INFORMATION
  Report Type: 
  Country: None (occurrence: None)
  Receive Date: 20040324
  Receipt Date: 20040312
  Transmission Date: 20041129
  Serious: Yes (Other)
  Sender: FDA-Public Use
  Company Number: PROG00204000680

PATIENT
  Age: 50 Year
  Sex: Female

DRUGS (5)
  1. PROMETRIUM [Suspect]
     Indication: VAGINAL HAEMORRHAGE
     Dosage: 200 MG BID PO
     Route: 048
     Dates: start: 20031213
  2. LEVAQUIN [Concomitant]
  3. LEXAPRO [Concomitant]
  4. ACTOS [Concomitant]
  5. BLOOD PRESSURE MEDICATION (BLOOD PRESSURE MEDICATION) [Concomitant]

REACTIONS (6)
  - ALANINE AMINOTRANSFERASE INCREASED [None]
  - ASPARTATE AMINOTRANSFERASE INCREASED [None]
  - BILIRUBIN URINE [None]
  - EOSINOPHIL COUNT INCREASED [None]
  - PROTEIN URINE PRESENT [None]
  - RED BLOOD CELLS URINE POSITIVE [None]
